FAERS Safety Report 5022323-8 (Version None)
Quarter: 2006Q2

REPORT INFORMATION
  Report Type: 
  Country: None (occurrence: None)
  Receive Date: 20060501
  Receipt Date: 20050509
  Transmission Date: 20061013
  Serious: Yes (Other)
  Sender: FDA-Public Use
  Company Number: 18307

PATIENT
  Age: 70 Year
  Sex: Female
  Weight: 55.7924 kg

DRUGS (4)
  1. LEUCOVORIN CALCIUM [Suspect]
     Indication: COLON CANCER
     Dosage: 320 MG IV PER PROTOCOL
     Route: 042
     Dates: start: 20050509
  2. OXALIPLATIN 100 MG IV [Concomitant]
  3. ANZEMET [Concomitant]
  4. DEXAMETHASONE 20 MG IV [Concomitant]

REACTIONS (2)
  - FLUSHING [None]
  - VOMITING [None]
